FAERS Safety Report 12263325 (Version 1)
Quarter: 2016Q2

REPORT INFORMATION
  Report Type: Spontaneous
  Country: FR (occurrence: FR)
  Receive Date: 20160413
  Receipt Date: 20160413
  Transmission Date: 20160815
  Serious: Yes (Hospitalization)
  Sender: FDA-Public Use
  Company Number: FR-SA-2016SA070215

PATIENT
  Age: 38 Year
  Sex: Female

DRUGS (6)
  1. INEXIUM [Concomitant]
     Active Substance: ESOMEPRAZOLE
  2. SPECIAFOLDINE [Concomitant]
     Active Substance: FOLIC ACID
  3. SALAZOPYRINE [Concomitant]
     Active Substance: SULFASALAZINE
  4. ATENOLOL. [Concomitant]
     Active Substance: ATENOLOL
  5. PREVISCAN [Concomitant]
     Active Substance: FLUINDIONE
  6. ARAVA [Suspect]
     Active Substance: LEFLUNOMIDE
     Indication: SYSTEMIC LUPUS ERYTHEMATOSUS
     Route: 048
     Dates: start: 201508, end: 201601

REACTIONS (2)
  - Superinfection [Recovering/Resolving]
  - Skin lesion [Recovering/Resolving]

NARRATIVE: CASE EVENT DATE: 201512
